FAERS Safety Report 8043888-8 (Version None)
Quarter: 2012Q1

REPORT INFORMATION
  Report Type: 
  Country: None (occurrence: None)
  Receive Date: 20120113
  Receipt Date: 20120106
  Transmission Date: 20120608
  Serious: No
  Sender: FDA-Public Use
  Company Number: US-BIOGENIDEC-2012BI000905

PATIENT
  Age: 35 Year
  Sex: Female

DRUGS (2)
  1. TYSABRI [Suspect]
     Indication: MULTIPLE SCLEROSIS
     Route: 042
     Dates: start: 20060701
  2. TYSABRI [Suspect]
     Route: 042
     Dates: start: 20050101, end: 20050201

REACTIONS (2)
  - OVARIAN CYST [None]
  - MENSTRUATION IRREGULAR [None]
